FAERS Safety Report 26196427 (Version 1)
Quarter: 2025Q4

REPORT INFORMATION
  Report Type: Spontaneous
  Country: AU (occurrence: AU)
  Receive Date: 20251224
  Receipt Date: 20251224
  Transmission Date: 20260118
  Serious: Yes (Death, Hospitalization, Other)
  Sender: SANDOZ
  Company Number: None

PATIENT
  Age: 85 Year
  Sex: Female
  Weight: 77 kg

DRUGS (8)
  1. FULVESTRANT [Suspect]
     Active Substance: FULVESTRANT
     Indication: Product used for unknown indication
     Dosage: UNK
  2. TRUQAP [Suspect]
     Active Substance: CAPIVASERTIB
     Indication: Breast cancer female
     Dosage: 800 MG, QD
     Dates: start: 20251013, end: 20251021
  3. CODEINE [Concomitant]
     Active Substance: CODEINE
     Indication: Product used for unknown indication
     Dosage: UNK, QD
  4. LETROZOLE [Concomitant]
     Active Substance: LETROZOLE
     Indication: Product used for unknown indication
     Dosage: 2.5 MG
  5. TAPENTADOL [Concomitant]
     Active Substance: TAPENTADOL
     Indication: Product used for unknown indication
     Dosage: 50 MG, Q3H
  6. TAPENTADOL [Concomitant]
     Active Substance: TAPENTADOL
     Dosage: 100 MG
  7. TAPENTADOL [Concomitant]
     Active Substance: TAPENTADOL
     Dosage: 150 MG
  8. TRIMETHOPRIM [Concomitant]
     Active Substance: TRIMETHOPRIM
     Indication: Product used for unknown indication
     Dosage: 300 MG
     Dates: start: 20251016, end: 20251019

REACTIONS (12)
  - Rash [Fatal]
  - Septic shock [Fatal]
  - Erythema multiforme [Fatal]
  - Pain of skin [Fatal]
  - Systemic inflammatory response syndrome [Fatal]
  - Bacterial sepsis [Fatal]
  - Skin lesion [Fatal]
  - Urticaria [Fatal]
  - Inflammation [Fatal]
  - Rash maculo-papular [Fatal]
  - Pyrexia [Fatal]
  - Skin oedema [Unknown]

NARRATIVE: CASE EVENT DATE: 20251021
